FAERS Safety Report 21068768 (Version 1)
Quarter: 2022Q3

REPORT INFORMATION
  Report Type: Spontaneous
  Country: US (occurrence: None)
  Receive Date: 20220711
  Receipt Date: 20220711
  Transmission Date: 20221027
  Serious: Yes (Hospitalization)
  Sender: FDA-Public Use
  Company Number: None

PATIENT

DRUGS (12)
  1. CREON [Suspect]
     Active Substance: PANCRELIPASE AMYLASE\PANCRELIPASE LIPASE\PANCRELIPASE PROTEASE
     Indication: Cystic fibrosis
     Route: 048
     Dates: start: 20220517
  2. AZITHROMYCIN [Concomitant]
     Active Substance: AZITHROMYCIN
  3. COLISTIMETHATE SODIUM [Concomitant]
  4. FAMOTIDINE [Concomitant]
  5. FLUTICASONE PROPIONATE [Concomitant]
     Active Substance: FLUTICASONE PROPIONATE
  6. MONTELUKAST SODIUM [Concomitant]
  7. OMEPRAZOLE [Concomitant]
  8. SODIUM CHLORIDE [Concomitant]
  9. SYMBICORT [Concomitant]
  10. URSODIOL [Concomitant]
     Active Substance: URSODIOL
  11. VENTOLIN HFA [Concomitant]
  12. VITAMIN D [Concomitant]

REACTIONS (2)
  - Hospitalisation [None]
  - Therapy interrupted [None]
